FAERS Safety Report 14941066 (Version 7)
Quarter: 2020Q4

REPORT INFORMATION
  Report Type: Report from Study
  Country: JP (occurrence: JP)
  Receive Date: 20180525
  Receipt Date: 20201201
  Transmission Date: 20210113
  Serious: Yes (Death, Hospitalization)
  Sender: FDA-Public Use
  Company Number: JP-PFIZER INC-2018069008

PATIENT
  Age: 65 Year
  Sex: Male
  Weight: 58 kg

DRUGS (3)
  1. CARERAM [Concomitant]
     Active Substance: IGURATIMOD
     Dosage: 25 MG, DAILY
     Dates: start: 20171102, end: 20171116
  2. XELJANZ [Suspect]
     Active Substance: TOFACITINIB CITRATE
     Indication: RHEUMATOID ARTHRITIS
     Dosage: 5 MG, 2X/DAY
     Route: 048
     Dates: start: 20170519, end: 20180119
  3. CARERAM [Concomitant]
     Active Substance: IGURATIMOD
     Dosage: 50 MG, DAILY
     Dates: start: 20171116, end: 20180119

REACTIONS (3)
  - Condition aggravated [Fatal]
  - Metastases to liver [Fatal]
  - Lung neoplasm malignant [Fatal]

NARRATIVE: CASE EVENT DATE: 20180105
